FAERS Safety Report 7967774-4 (Version None)
Quarter: 2011Q4

REPORT INFORMATION
  Report Type: 
  Country: None (occurrence: None)
  Receive Date: 20111122
  Receipt Date: 20110705
  Transmission Date: 20120403
  Serious: No
  Sender: FDA-Public Use
  Company Number: PHHY2011US54718

PATIENT
  Age: 33 Year
  Sex: Female

DRUGS (1)
  1. GILENYA [Suspect]
     Dosage: 0.5 MG, QD, ORAL, 0.5 MG, QD, ORAL
     Route: 048
     Dates: start: 20110603, end: 20110603

REACTIONS (4)
  - PARAESTHESIA [None]
  - COUGH [None]
  - NASOPHARYNGITIS [None]
  - FEELING COLD [None]
